FAERS Safety Report 9848235 (Version 2)
Quarter: 2014Q2

REPORT INFORMATION
  Report Type: Report from Study
  Country: FR (occurrence: FR)
  Receive Date: 20140128
  Receipt Date: 20140610
  Transmission Date: 20141212
  Serious: Yes (Congenital Anomaly, Other)
  Sender: FDA-Public Use
  Company Number: PHHY2014FR007907

PATIENT
  Sex: Male

DRUGS (1)
  1. ILARIS [Suspect]
     Route: 064

REACTIONS (4)
  - Foetal growth restriction [Unknown]
  - Congenital pyelocaliectasis [Not Recovered/Not Resolved]
  - Bone development abnormal [Unknown]
  - Exposure via father [Unknown]
